FAERS Safety Report 24316809 (Version 1)
Quarter: 2024Q3

REPORT INFORMATION
  Report Type: Spontaneous
  Country: CA (occurrence: CA)
  Receive Date: 20240913
  Receipt Date: 20240913
  Transmission Date: 20241017
  Serious: Yes (Other)
  Sender: BAXTER
  Company Number: CA-BAXTER-2024BAX024249

PATIENT
  Age: 73 Year
  Sex: Female

DRUGS (11)
  1. ONDANSETRON [Suspect]
     Active Substance: ONDANSETRON
     Dosage: ONDANSETRON HYDROCHLORIDE
     Route: 065
  2. ACETAMINOPHEN [Suspect]
     Active Substance: ACETAMINOPHEN
     Dosage: (DOSAGE FORM : NOT SPECIFIED)
     Route: 065
  3. CETIRIZINE [Suspect]
     Active Substance: CETIRIZINE HYDROCHLORIDE
     Dosage: (DOSAGE FORM : NOT SPECIFIED)
     Route: 065
  4. CHOLECALCIFEROL [Suspect]
     Active Substance: CHOLECALCIFEROL
     Dosage: (DOSAGE FORM : NOT SPECIFIED)
     Route: 065
  5. DESONIDE [Suspect]
     Active Substance: DESONIDE
     Dosage: (DOSAGE FORM : NOT SPECIFIED)
     Route: 065
  6. HYDROMORPHONE HCL [Suspect]
     Active Substance: HYDROMORPHONE HYDROCHLORIDE
     Dosage: HYDROMORPHONE HCL INJ USP, DOSAGE FORM: SOLUTION INTRAMUSCULAR
     Route: 065
  7. MAGNESIUM OXIDE [Suspect]
     Active Substance: MAGNESIUM OXIDE
     Dosage: (DOSAGE FORM : NOT SPECIFIED)
     Route: 065
  8. VITAMINS [Suspect]
     Active Substance: VITAMINS
     Dosage: (DOSAGE FORM : NOT SPECIFIED)
     Route: 065
  9. SENNOSIDES [Suspect]
     Active Substance: SENNOSIDES
     Dosage: (DOSAGE FORM : NOT SPECIFIED)
     Route: 065
  10. VALACYCLOVIR [Suspect]
     Active Substance: VALACYCLOVIR HYDROCHLORIDE
     Dosage: (DOSAGE FORM : NOT SPECIFIED)
     Route: 065
  11. MENAQUINONE 6 [Suspect]
     Active Substance: MENAQUINONE 6
     Dosage: (DOSAGE FORM : NOT SPECIFIED)
     Route: 065

REACTIONS (1)
  - Febrile neutropenia [Unknown]
